FAERS Safety Report 10172634 (Version 1)
Quarter: 2014Q2

REPORT INFORMATION
  Report Type: Spontaneous
  Country: US (occurrence: US)
  Receive Date: 20140515
  Receipt Date: 20140515
  Transmission Date: 20141212
  Serious: No
  Sender: FDA-Public Use
  Company Number: US-ABBVIE-13P-163-1176474-00

PATIENT
  Sex: Female
  Weight: 83.99 kg

DRUGS (7)
  1. GENGRAF [Suspect]
     Indication: RENAL TRANSPLANT
     Dosage: IN MORNING
     Route: 048
     Dates: end: 20131120
  2. GENGRAF [Suspect]
     Dosage: IN EVENING
     Route: 048
     Dates: end: 20131119
  3. GENGRAF [Suspect]
     Dosage: 75 MG MORNING AND EVENING
     Route: 048
     Dates: start: 20131120
  4. GENGRAF [Suspect]
     Dates: start: 20131227
  5. PREDNISONE [Concomitant]
     Indication: RENAL TRANSPLANT
     Dates: start: 199705
  6. CELLCEPT [Concomitant]
     Indication: RENAL TRANSPLANT
     Dates: start: 199705
  7. LASIX [Concomitant]
     Indication: PRODUCT USED FOR UNKNOWN INDICATION

REACTIONS (2)
  - Drug level decreased [Not Recovered/Not Resolved]
  - Product formulation issue [Recovered/Resolved]
